FAERS Safety Report 18690279 (Version 1)
Quarter: 2020Q4

REPORT INFORMATION
  Report Type: Spontaneous
  Country: FR (occurrence: FR)
  Receive Date: 20201231
  Receipt Date: 20201231
  Transmission Date: 20210114
  Serious: Yes (Other)
  Sender: FDA-Public Use
  Company Number: FR-MALLINCKRODT-T202006064

PATIENT
  Age: 65 Year
  Sex: Male

DRUGS (2)
  1. RUXOLITINIB [Concomitant]
     Active Substance: RUXOLITINIB
     Indication: CHRONIC GRAFT VERSUS HOST DISEASE
     Dosage: UNK
     Route: 065
  2. UVADEX [Suspect]
     Active Substance: METHOXSALEN
     Indication: CHRONIC GRAFT VERSUS HOST DISEASE
     Dosage: UNK, EXTRACORPOREAL
     Route: 050

REACTIONS (2)
  - Product use in unapproved indication [Unknown]
  - Graft versus host disease in skin [Unknown]
